FAERS Safety Report 23043775 (Version 1)
Quarter: 2023Q4

REPORT INFORMATION
  Report Type: Spontaneous
  Country: US (occurrence: US)
  Receive Date: 20231009
  Receipt Date: 20231009
  Transmission Date: 20240110
  Serious: No
  Sender: FDA-Public Use
  Company Number: US-HORIZON THERAPEUTICS-HZN-2022-007502

PATIENT

DRUGS (2)
  1. KRYSTEXXA [Suspect]
     Active Substance: PEGLOTICASE
     Indication: Product used for unknown indication
     Dosage: FIRST INFUSION
     Route: 042
  2. KRYSTEXXA [Suspect]
     Active Substance: PEGLOTICASE
     Dosage: UNK INFUSION
     Route: 042

REACTIONS (4)
  - Infusion site pain [Not Recovered/Not Resolved]
  - Infusion site bruising [Unknown]
  - Peripheral swelling [Unknown]
  - Vascular access complication [Unknown]

NARRATIVE: CASE EVENT DATE: 20220101
